FAERS Safety Report 17489729 (Version 1)
Quarter: 2020Q1

REPORT INFORMATION
  Report Type: Spontaneous
  Country: US (occurrence: US)
  Receive Date: 20200303
  Receipt Date: 20200303
  Transmission Date: 20200409
  Serious: Yes (Death, Hospitalization)
  Sender: FDA-Public Use
  Company Number: US-TEVA-2020-US-1193369

PATIENT
  Age: 46 Year
  Sex: Male

DRUGS (3)
  1. ISOFLURANE. [Suspect]
     Active Substance: ISOFLURANE
     Dosage: THE PATIENT INHALED 5 BOTTLES OF ISOFLURANE
     Route: 055
  2. NOREPINEPHRINE. [Suspect]
     Active Substance: NOREPINEPHRINE
     Indication: CARDIAC ARREST
     Route: 065
  3. EPINEPHRINE. [Concomitant]
     Active Substance: EPINEPHRINE
     Indication: CARDIAC ARREST
     Route: 065

REACTIONS (4)
  - Respiratory failure [Fatal]
  - Cardiac arrest [Fatal]
  - Hypotension [Fatal]
  - Drug ineffective [Unknown]
